APPROVED DRUG PRODUCT: ISOPROTERENOL HYDROCHLORIDE
Active Ingredient: ISOPROTERENOL HYDROCHLORIDE
Strength: 0.5%
Dosage Form/Route: SOLUTION;INHALATION
Application: A086764 | Product #001
Applicant: DEY LP
Approved: Jan 4, 1982 | RLD: No | RS: No | Type: DISCN